FAERS Safety Report 5426040-1 (Version None)
Quarter: 2007Q3

REPORT INFORMATION
  Report Type: 
  Country: None (occurrence: None)
  Receive Date: 20070827
  Receipt Date: 20070816
  Transmission Date: 20080115
  Serious: Yes (Other)
  Sender: FDA-Public Use
  Company Number: CA-JNJFOC-20070501628

PATIENT
  Sex: Female

DRUGS (5)
  1. REMICADE [Suspect]
     Route: 042
  2. REMICADE [Suspect]
     Route: 042
  3. REMICADE [Suspect]
     Indication: RHEUMATOID ARTHRITIS
     Route: 042
  4. TYLENOL W/ CODEINE NO. 3 [Concomitant]
     Indication: ARTHRALGIA
  5. EFFEXOR [Concomitant]
     Indication: DEPRESSION
     Route: 048

REACTIONS (2)
  - BREAST CANCER [None]
  - HEADACHE [None]
